FAERS Safety Report 10036410 (Version 1)
Quarter: 2014Q1

REPORT INFORMATION
  Report Type: Spontaneous
  Country: BR (occurrence: BR)
  Receive Date: 20140325
  Receipt Date: 20140325
  Transmission Date: 20141002
  Serious: Yes (Hospitalization)
  Sender: FDA-Public Use
  Company Number: BR-ACORDA-ACO_102597_2014

PATIENT
  Age: 45 Year
  Sex: Female

DRUGS (2)
  1. FAMPYRA [Suspect]
     Indication: GAIT DISTURBANCE
     Dosage: 10 MG, UNK
     Route: 048
     Dates: start: 20140125, end: 20140203
  2. TYSABRI [Concomitant]
     Indication: PRODUCT USED FOR UNKNOWN INDICATION
     Dosage: UNK
     Route: 065
     Dates: start: 201205, end: 20140120

REACTIONS (1)
  - Spontaneous haematoma [Recovered/Resolved with Sequelae]
